FAERS Safety Report 9117144 (Version 1)
Quarter: 2013Q1

REPORT INFORMATION
  Report Type: Spontaneous
  Country: JO (occurrence: JO)
  Receive Date: 20130225
  Receipt Date: 20130225
  Transmission Date: 20140127
  Serious: Yes (Other)
  Sender: FDA-Public Use
  Company Number: JO-JNJFOC-20130210345

PATIENT
  Age: 73 Year
  Sex: Female

DRUGS (4)
  1. RISPERDAL [Suspect]
     Indication: ABNORMAL BEHAVIOUR
     Dosage: 1 MG AT NIGHT ONLY
     Route: 048
     Dates: start: 201108
  2. RISPERDAL [Suspect]
     Indication: AGITATION
     Dosage: 1 MG AT NIGHT ONLY
     Route: 048
     Dates: start: 201108
  3. ANTIHYPERTENSIVES [Concomitant]
     Route: 065
  4. PLAVIX [Concomitant]
     Route: 065

REACTIONS (1)
  - Haemorrhagic stroke [Unknown]
